FAERS Safety Report 5810546-7 (Version None)
Quarter: 2008Q3

REPORT INFORMATION
  Report Type: 
  Country: None (occurrence: None)
  Receive Date: 20080715
  Receipt Date: 20080703
  Transmission Date: 20090109
  Serious: Yes (Life-Threatening, Hospitalization, Disabling)
  Sender: FDA-Public Use
  Company Number: DE-PFIZER INC-2008056335

PATIENT
  Sex: Male
  Weight: 89 kg

DRUGS (14)
  1. LYRICA [Suspect]
     Indication: NEUROPATHY PERIPHERAL
     Route: 048
     Dates: start: 20080513, end: 20080521
  2. XIPAMIDE [Concomitant]
  3. LASIX [Concomitant]
  4. PROGRAF [Concomitant]
  5. PANTOPRAZOLE SODIUM [Concomitant]
  6. MEDYN [Concomitant]
  7. SODIUM POLYSTYRENE SULFONATE [Concomitant]
  8. BELOC ZOK [Concomitant]
  9. DIGIMERCK [Concomitant]
  10. ALLOPURINOL [Concomitant]
  11. PREDNISONE TAB [Concomitant]
  12. CARMEN [Concomitant]
  13. LIMPTAR N [Concomitant]
  14. MARCUMAR [Concomitant]

REACTIONS (8)
  - ANOREXIA [None]
  - BLOOD GLUCOSE INCREASED [None]
  - DEPRESSION [None]
  - DIARRHOEA [None]
  - DIZZINESS [None]
  - EUPHORIC MOOD [None]
  - ORAL DISCOMFORT [None]
  - RENAL FUNCTION TEST ABNORMAL [None]
